FAERS Safety Report 8605087-8 (Version None)
Quarter: 2012Q3

REPORT INFORMATION
  Report Type: 
  Country: None (occurrence: None)
  Receive Date: 20120820
  Receipt Date: 20120808
  Transmission Date: 20120928
  Serious: Yes (Other)
  Sender: FDA-Public Use
  Company Number: US-JNJFOC-20120805110

PATIENT
  Age: 60 Year
  Sex: Female
  Weight: 64.41 kg

DRUGS (5)
  1. SINGULAIR [Concomitant]
     Indication: ASTHMA
     Dosage: DAILY
     Route: 065
  2. LISTERINE SMART RINSE PHINEAS AND FERB BUBBLE BLAST [Suspect]
     Indication: DENTAL DISORDER PROPHYLAXIS
     Route: 048
     Dates: start: 20120807, end: 20120807
  3. ASTHMA INHALER, UNSPECIFIED [Concomitant]
     Indication: ASTHMA
     Dosage: AS NEEDED
     Route: 065
  4. DULERA [Concomitant]
     Indication: ASTHMA
     Dosage: AS NEEDED
     Route: 065
  5. LISTERINE SMART RINSE PHINEAS AND FERB BUBBLE BLAST [Suspect]
     Dosage: AS INDICATED ON PRODUCT
     Route: 048
     Dates: start: 20110101

REACTIONS (2)
  - ASTHMA [None]
  - PRODUCT TASTE ABNORMAL [None]
